FAERS Safety Report 9164611 (Version 1)
Quarter: 2013Q1

REPORT INFORMATION
  Report Type: Spontaneous
  Country: FR (occurrence: None)
  Receive Date: 20130213
  Receipt Date: 20130213
  Transmission Date: 20140127
  Serious: Yes (Hospitalization)
  Sender: FDA-Public Use
  Company Number: FR-2012-2411

PATIENT
  Age: 49 Year
  Sex: Male

DRUGS (3)
  1. NAVELBINE [Suspect]
     Indication: HODGKIN^S DISEASE
     Route: 042
     Dates: start: 20120430
  2. GEMZAR [Suspect]
     Indication: HODGKIN^S DISEASE
     Route: 042
     Dates: start: 20120430
  3. IFOSFAMIDE [Suspect]
     Indication: HODGKIN^S DISEASE
     Route: 042

REACTIONS (7)
  - Pyrexia [None]
  - Chills [None]
  - Tachycardia [None]
  - Face oedema [None]
  - Eyelid oedema [None]
  - Oxygen saturation decreased [None]
  - Blood pressure systolic increased [None]
